FAERS Safety Report 25027243 (Version 2)
Quarter: 2025Q2

REPORT INFORMATION
  Report Type: Spontaneous
  Country: US (occurrence: US)
  Receive Date: 20250301
  Receipt Date: 20250525
  Transmission Date: 20250716
  Serious: Yes (Other)
  Sender: SANOFI AVENTIS
  Company Number: US-SA-2025SA055705

PATIENT
  Sex: Male
  Weight: 62.32 kg

DRUGS (5)
  1. DUPIXENT [Suspect]
     Active Substance: DUPILUMAB
     Dosage: 300 MG, QW
     Route: 058
  2. DUPIXENT [Suspect]
     Active Substance: DUPILUMAB
     Indication: Eosinophilic oesophagitis
     Dosage: 300 MG, QW
     Route: 058
  3. STELARA [Suspect]
     Active Substance: USTEKINUMAB
  4. CABTREO [Concomitant]
     Active Substance: ADAPALENE\BENZOYL PEROXIDE\CLINDAMYCIN PHOSPHATE
  5. ALBUTEROL SULFATE [Concomitant]
     Active Substance: ALBUTEROL SULFATE

REACTIONS (6)
  - Appendicectomy [Unknown]
  - Intestinal resection [Unknown]
  - Reaction to excipient [Unknown]
  - Burning sensation [Unknown]
  - Injection site pain [Unknown]
  - Ileocaecal resection [Unknown]

NARRATIVE: CASE EVENT DATE: 20250101
